FAERS Safety Report 23942588 (Version 1)
Quarter: 2024Q2

REPORT INFORMATION
  Report Type: Spontaneous
  Country: US (occurrence: US)
  Receive Date: 20240605
  Receipt Date: 20240605
  Transmission Date: 20240716
  Serious: Yes (Hospitalization, Other)
  Sender: FDA-Public Use
  Company Number: US-002147023-NVSC2024US114709

PATIENT
  Sex: Male

DRUGS (1)
  1. PLUVICTO [Suspect]
     Active Substance: LUTETIUM LU-177 VIPIVOTIDE TETRAXETAN
     Indication: Product used for unknown indication
     Dosage: UNK
     Route: 065

REACTIONS (21)
  - Asthenia [Recovered/Resolved]
  - Intervertebral disc degeneration [Unknown]
  - Arthralgia [Unknown]
  - Arthralgia [Unknown]
  - Metastases to bone [Not Recovered/Not Resolved]
  - Neuropathy peripheral [Unknown]
  - Renal failure [Unknown]
  - Bone marrow failure [Recovered/Resolved]
  - Fatigue [Not Recovered/Not Resolved]
  - Gastrointestinal disorder [Unknown]
  - Pain [Recovered/Resolved]
  - Nausea [Unknown]
  - Anaemia [Unknown]
  - Dry mouth [Unknown]
  - Diarrhoea [Unknown]
  - Back pain [Not Recovered/Not Resolved]
  - Spinal pain [Unknown]
  - Musculoskeletal chest pain [Unknown]
  - Bone pain [Unknown]
  - Taste disorder [Recovering/Resolving]
  - Dry eye [Unknown]
